FAERS Safety Report 22085522 (Version 1)
Quarter: 2023Q1

REPORT INFORMATION
  Report Type: Spontaneous
  Country: IT (occurrence: None)
  Receive Date: 20230310
  Receipt Date: 20230310
  Transmission Date: 20230418
  Serious: Yes (Other)
  Sender: FDA-Public Use
  Company Number: 2023A058305

PATIENT
  Age: 73 Year
  Sex: Female
  Weight: 95 kg

DRUGS (8)
  1. OMEPRAZOLE SODIUM [Suspect]
     Active Substance: OMEPRAZOLE SODIUM
  2. PACLITAXEL [Suspect]
     Active Substance: PACLITAXEL
     Route: 042
  3. LEVOTHYROXINE SODIUM [Concomitant]
     Active Substance: LEVOTHYROXINE SODIUM
  4. METOPROLOL [Concomitant]
     Active Substance: METOPROLOL
  5. ASPIRIN [Concomitant]
     Active Substance: ASPIRIN
  6. METFORMIN HYDROCHLORIDE [Concomitant]
     Active Substance: METFORMIN HYDROCHLORIDE
  7. VITAMIN D [Concomitant]
     Active Substance: VITAMIN D NOS
  8. INDAPAMIDE\PERINDOPRIL ARGININE [Concomitant]
     Active Substance: INDAPAMIDE\PERINDOPRIL ARGININE

REACTIONS (2)
  - Diarrhoea [Recovered/Resolved]
  - Haematochezia [Recovered/Resolved]

NARRATIVE: CASE EVENT DATE: 20221128
